FAERS Safety Report 4450891-3 (Version None)
Quarter: 2004Q3

REPORT INFORMATION
  Report Type: 
  Country: None (occurrence: None)
  Receive Date: 20040913
  Receipt Date: 20040521
  Transmission Date: 20050211
  Serious: No
  Sender: FDA-Public Use
  Company Number: 2004-BP-04010BP(0)

PATIENT
  Age: 74 Year
  Sex: Male
  Weight: 115.2 kg

DRUGS (21)
  1. SPIRIVA [Suspect]
     Indication: CHRONIC OBSTRUCTIVE AIRWAYS DISEASE
     Dosage: 18 MCG (18 MCG,18 MCG DAILY), IH
     Dates: start: 20040520, end: 20040521
  2. LANOXIN (DOGOXIN) [Concomitant]
  3. NIASPAN [Concomitant]
  4. ACETYLSALICYLIC ACID SRT [Concomitant]
  5. PRAVACHOL [Concomitant]
  6. SYNTHROID [Concomitant]
  7. TIKOSYN [Concomitant]
  8. ACCUPRIL [Concomitant]
  9. ALLEGRA [Concomitant]
  10. CARDIZEM [Concomitant]
  11. CEFTIN [Concomitant]
  12. DAYPRO [Concomitant]
  13. ETHMOZINE (MORACIZINE HYDROCHLORIDE) [Concomitant]
  14. FLOVENT (FLUTICASON PROPIONATE) [Concomitant]
  15. FLONASE (FLUTICASONE HYDROCHLORIDE) [Concomitant]
  16. K-DUR 10 [Concomitant]
  17. ZYRTEC [Concomitant]
  18. ASTELIN [Concomitant]
  19. SINGULAIR [Concomitant]
  20. ALBUTEROL/ATROVENT [Concomitant]
  21. EPI-PEN (EPINEPHRINE) [Concomitant]

REACTIONS (2)
  - DYSPNOEA [None]
  - LETHARGY [None]
